FAERS Safety Report 7331641-X (Version None)
Quarter: 2011Q1

REPORT INFORMATION
  Report Type: 
  Country: None (occurrence: None)
  Receive Date: 20110304
  Receipt Date: 20110224
  Transmission Date: 20110831
  Serious: Yes (Other)
  Sender: FDA-Public Use
  Company Number: CA-NOVOPROD-323933

PATIENT
  Age: 61 Year
  Sex: Female

DRUGS (2)
  1. NOVOLIN GE NPH PENFILL [Suspect]
     Indication: PRODUCT USED FOR UNKNOWN INDICATION
     Route: 065
  2. METHADONE [Concomitant]

REACTIONS (3)
  - PARANOIA [None]
  - HALLUCINATION [None]
  - ANXIETY [None]
